FAERS Safety Report 10692609 (Version 1)
Quarter: 2015Q1

REPORT INFORMATION
  Report Type: Spontaneous
  Country: JP (occurrence: JP)
  Receive Date: 20150106
  Receipt Date: 20150106
  Transmission Date: 20150720
  Serious: Yes (Hospitalization)
  Sender: FDA-Public Use
  Company Number: JP-BRISTOL-MYERS SQUIBB COMPANY-BMS-2014-005077

PATIENT
  Age: 57 Year
  Sex: Female
  Weight: 73.6 kg

DRUGS (9)
  1. PROGRAF [Concomitant]
     Active Substance: TACROLIMUS\TACROLIMUS ANHYDROUS
  2. PIRESPA [Concomitant]
     Active Substance: PIRFENIDONE
  3. ORENCIA [Suspect]
     Active Substance: ABATACEPT
     Indication: RHEUMATOID ARTHRITIS
     Dosage: 750 MG, QD
     Route: 042
     Dates: start: 20140116, end: 20141101
  4. PREDNISOLONE. [Concomitant]
     Active Substance: PREDNISOLONE
  5. SELBEX [Concomitant]
     Active Substance: TEPRENONE
  6. CODEINE [Concomitant]
     Active Substance: CODEINE
  7. MUCODYNE [Concomitant]
     Active Substance: CARBOCYSTEINE
  8. DIART [Concomitant]
     Active Substance: AZOSEMIDE
  9. MUCOSOLVAN [Concomitant]
     Active Substance: AMBROXOL\CLENBUTEROL

REACTIONS (1)
  - Interstitial lung disease [Recovering/Resolving]

NARRATIVE: CASE EVENT DATE: 20141127
